FAERS Safety Report 24240152 (Version 2)
Quarter: 2024Q3

REPORT INFORMATION
  Report Type: Spontaneous
  Country: US (occurrence: US)
  Receive Date: 20240822
  Receipt Date: 20240906
  Transmission Date: 20241017
  Serious: Yes (Death, Hospitalization)
  Sender: TEVA
  Company Number: US-TEVA-VS-3234478

PATIENT
  Age: 87 Year
  Sex: Male

DRUGS (5)
  1. METHYLPREDNISOLONE [Suspect]
     Active Substance: METHYLPREDNISOLONE
     Indication: Myasthenia gravis
     Route: 065
     Dates: start: 202308
  2. HUMAN IMMUNOGLOBULIN G [Suspect]
     Active Substance: HUMAN IMMUNOGLOBULIN G
     Indication: Myasthenia gravis
     Route: 042
     Dates: start: 202308
  3. PYRIDOSTIGMINE [Suspect]
     Active Substance: PYRIDOSTIGMINE
     Indication: Myasthenia gravis
     Dosage: TIME INTERVAL: 0.33333333 DAYS
     Route: 030
     Dates: start: 202308
  4. PEMBROLIZUMAB [Suspect]
     Active Substance: PEMBROLIZUMAB
     Indication: Transitional cell carcinoma
     Route: 065
     Dates: start: 2023
  5. RITUXIMAB [Suspect]
     Active Substance: RITUXIMAB
     Indication: Myasthenia gravis
     Route: 065
     Dates: start: 202308

REACTIONS (7)
  - Cardiomyopathy [Fatal]
  - Aspiration [Fatal]
  - Myositis [Fatal]
  - Hypotension [Unknown]
  - Myasthenia gravis [Fatal]
  - Cholinergic syndrome [Unknown]
  - Drug ineffective [Fatal]

NARRATIVE: CASE EVENT DATE: 20230101
